FAERS Safety Report 12924660 (Version 1)
Quarter: 2016Q4

REPORT INFORMATION
  Report Type: Spontaneous
  Country: US (occurrence: US)
  Receive Date: 20161108
  Receipt Date: 20161108
  Transmission Date: 20170207
  Serious: Yes (Hospitalization)
  Sender: FDA-Public Use
  Company Number: None

PATIENT
  Age: 66 Year
  Sex: Male
  Weight: 61.8 kg

DRUGS (1)
  1. HEPARIN [Suspect]
     Active Substance: HEPARIN SODIUM
     Indication: THROMBOSIS
     Dosage: 25,000 UNITS/500 ML D5W
     Dates: start: 20151118, end: 20151123

REACTIONS (6)
  - Gastrointestinal inflammation [None]
  - Catheter site haemorrhage [None]
  - Haemoglobin decreased [None]
  - Haematocrit decreased [None]
  - Rectal haemorrhage [None]
  - International normalised ratio abnormal [None]

NARRATIVE: CASE EVENT DATE: 20151123
